FAERS Safety Report 15800381 (Version 5)
Quarter: 2025Q4

REPORT INFORMATION
  Report Type: Report from Study
  Country: GB (occurrence: GB)
  Receive Date: 20190108
  Receipt Date: 20251219
  Transmission Date: 20260117
  Serious: Yes (Hospitalization, Other)
  Sender: TAKEDA
  Company Number: GB-TAKEDA-2017MPI009741

PATIENT
  Age: 72 Year
  Sex: Male

DRUGS (8)
  1. IXAZOMIB [Suspect]
     Active Substance: IXAZOMIB
     Indication: Plasma cell myeloma
     Dosage: UNK
  2. IXAZOMIB [Suspect]
     Active Substance: IXAZOMIB
     Dosage: 3 MILLIGRAM
  3. DEXAMETHASONE [Suspect]
     Active Substance: DEXAMETHASONE
     Indication: Product used for unknown indication
     Dosage: 4 MG, UNK
  4. DEXAMETHASONE [Suspect]
     Active Substance: DEXAMETHASONE
     Dosage: UNK
  5. LENALIDOMIDE [Suspect]
     Active Substance: LENALIDOMIDE
     Indication: Product used for unknown indication
     Dosage: 10 MG, UNK
  6. LENALIDOMIDE [Suspect]
     Active Substance: LENALIDOMIDE
     Dosage: UNK
  7. WARFARIN [Concomitant]
     Active Substance: WARFARIN
     Indication: Atrial fibrillation
     Dosage: UNK
  8. PREGABALIN [Concomitant]
     Active Substance: PREGABALIN
     Dosage: UNK

REACTIONS (33)
  - Gastroenteritis norovirus [Unknown]
  - Neutropenia [Unknown]
  - Hyperkalaemia [Unknown]
  - Thrombocytopenia [Not Recovered/Not Resolved]
  - Spinal cord compression [Unknown]
  - Epistaxis [Unknown]
  - Contusion [Unknown]
  - Incontinence [Unknown]
  - Urinary tract infection [Unknown]
  - Lethargy [Unknown]
  - Hypernatraemia [Unknown]
  - Light chain analysis increased [Unknown]
  - Rales [Unknown]
  - Depressed mood [Unknown]
  - Coronavirus infection [Recovering/Resolving]
  - Malaise [Recovering/Resolving]
  - Abdominal distension [Unknown]
  - Feeling abnormal [Unknown]
  - Muscular weakness [Unknown]
  - Influenza [Recovering/Resolving]
  - Asthenia [Not Recovered/Not Resolved]
  - Productive cough [Unknown]
  - Confusional state [Unknown]
  - Dyspnoea exertional [Unknown]
  - Haemoglobin abnormal [Unknown]
  - Fatigue [Unknown]
  - Chills [Recovering/Resolving]
  - Nasopharyngitis [Recovering/Resolving]
  - Rash [Unknown]
  - Peripheral swelling [Unknown]
  - Diarrhoea [Unknown]
  - Constipation [Unknown]
  - Pain in extremity [Not Recovered/Not Resolved]

NARRATIVE: CASE EVENT DATE: 20171120
